FAERS Safety Report 4877351-X (Version None)
Quarter: 2006Q1

REPORT INFORMATION
  Report Type: 
  Country: None (occurrence: None)
  Receive Date: 20060111
  Receipt Date: 20060103
  Transmission Date: 20060701
  Serious: Yes (Other)
  Sender: FDA-Public Use
  Company Number: PHFR2006GB00457

PATIENT
  Age: 69 Year

DRUGS (6)
  1. THYROXINE [Concomitant]
     Route: 065
  2. ASPIRIN [Concomitant]
     Route: 065
  3. LISINOPRIL [Concomitant]
     Route: 065
  4. BENDROFLUAZIDE [Concomitant]
     Route: 065
  5. FERROUS SULFATE TAB [Concomitant]
  6. DICLOFENAC [Suspect]
     Indication: MUSCULOSKELETAL PAIN
     Dosage: 75MG DAILY
     Route: 048
     Dates: start: 20051124, end: 20051204

REACTIONS (2)
  - SWELLING FACE [None]
  - URTICARIA [None]
